FAERS Safety Report 5763089-3 (Version None)
Quarter: 2008Q2

REPORT INFORMATION
  Report Type: 
  Country: None (occurrence: None)
  Receive Date: 20080609
  Receipt Date: 20080528
  Transmission Date: 20081010
  Serious: Yes (Other)
  Sender: FDA-Public Use
  Company Number: CL-PFIZER INC-2008037275

PATIENT
  Age: 44 Year
  Sex: Female
  Weight: 53 kg

DRUGS (5)
  1. LYRICA [Suspect]
     Indication: SCIATICA
     Route: 048
     Dates: start: 20080426, end: 20080428
  2. AMITRIPTYLINE HCL [Concomitant]
     Route: 048
  3. CLONAZEPAM [Concomitant]
     Route: 048
  4. ALL OTHER THERAPEUTIC PRODUCTS [Concomitant]
  5. TRAMADOL HYDROCHLORIDE AND ACETAMINOPHEN [Concomitant]
     Route: 048

REACTIONS (5)
  - BALANCE DISORDER [None]
  - CONVULSION [None]
  - ERYTHEMA [None]
  - FEELING DRUNK [None]
  - SPEECH DISORDER [None]
